FAERS Safety Report 14739906 (Version 2)
Quarter: 2018Q2

REPORT INFORMATION
  Report Type: Spontaneous
  Country: US (occurrence: US)
  Receive Date: 20180410
  Receipt Date: 20180608
  Transmission Date: 20180711
  Serious: No
  Sender: FDA-Public Use
  Company Number: US-PFIZER INC-2018144151

PATIENT
  Age: 89 Year
  Sex: Female
  Weight: 72.56 kg

DRUGS (2)
  1. IBRANCE [Suspect]
     Active Substance: PALBOCICLIB
     Dosage: 75 MG, CYCLIC(D1-21 Q28 DAYS)
     Route: 048
     Dates: start: 20180407, end: 201806
  2. IBRANCE [Suspect]
     Active Substance: PALBOCICLIB
     Indication: BREAST CANCER METASTATIC
     Dosage: 125 MG, CYCLIC (D1- 21 Q 28 DAYS)
     Route: 048
     Dates: start: 2016

REACTIONS (3)
  - Decreased appetite [Unknown]
  - Vomiting [Unknown]
  - Abdominal pain [Unknown]
